FAERS Safety Report 4299676-1 (Version None)
Quarter: 2004Q1

REPORT INFORMATION
  Report Type: 
  Country: None (occurrence: None)
  Receive Date: 20040217
  Receipt Date: 20040204
  Transmission Date: 20041129
  Serious: Yes (Life-Threatening)
  Sender: FDA-Public Use
  Company Number: 03P-167-0241617-00

PATIENT
  Age: 55 Year
  Sex: Female

DRUGS (4)
  1. DEPAKOTE [Suspect]
     Dosage: 500 MG, 3 IN 1 D, ; 1200 MG, 1 IN 1 D, ORAL
     Route: 048
     Dates: end: 20031023
  2. DEPAKOTE [Suspect]
     Dosage: 500 MG, 3 IN 1 D, ; 1200 MG, 1 IN 1 D, ORAL
     Route: 048
     Dates: start: 20031023, end: 20031123
  3. RISPERIDONE [Concomitant]
  4. NITRAZEPAM [Concomitant]

REACTIONS (6)
  - CONTUSION [None]
  - DIALYSIS [None]
  - MYOGLOBINURIA [None]
  - RENAL FAILURE ACUTE [None]
  - RHABDOMYOLYSIS [None]
  - UROSEPSIS [None]
